FAERS Safety Report 9411273 (Version 4)
Quarter: 2014Q1

REPORT INFORMATION
  Report Type: Report from Study
  Country: US (occurrence: US)
  Receive Date: 20130722
  Receipt Date: 20140219
  Transmission Date: 20141002
  Serious: Yes (Other)
  Sender: FDA-Public Use
  Company Number: US-BIOGENIDEC-2013BI063447

PATIENT
  Age: 61 Year
  Sex: Male
  Weight: 100 kg

DRUGS (17)
  1. TYSABRI [Suspect]
     Indication: MULTIPLE SCLEROSIS
     Route: 042
     Dates: start: 20080826, end: 20130628
  2. GABAPENTIN [Concomitant]
     Indication: NEURALGIA
  3. BOTOX [Concomitant]
     Indication: MUSCLE SPASTICITY
  4. TOVIAZ [Concomitant]
     Indication: HYPERTENSION
  5. AMPYRA [Concomitant]
     Indication: GAIT DISTURBANCE
  6. FLOMAX [Concomitant]
     Indication: BLADDER DISORDER
  7. PROTONIX [Concomitant]
  8. CELEXA [Concomitant]
  9. KLONOPIN [Concomitant]
     Indication: MUSCLE SPASTICITY
  10. CLARITIN [Concomitant]
     Indication: MULTIPLE ALLERGIES
  11. DILTIAZEM [Concomitant]
  12. TRIAMTERENE [Concomitant]
  13. HCTZ [Concomitant]
  14. ASPIRIN [Concomitant]
  15. BACLOFEN [Concomitant]
  16. HYDRALAZINE [Concomitant]
  17. BENADRYL [Concomitant]

REACTIONS (1)
  - Bladder cancer [Not Recovered/Not Resolved]
